FAERS Safety Report 12808035 (Version 2)
Quarter: 2016Q4

REPORT INFORMATION
  Report Type: Spontaneous
  Country: UY (occurrence: UY)
  Receive Date: 20161004
  Receipt Date: 20161010
  Transmission Date: 20170207
  Serious: Yes (Other)
  Sender: FDA-Public Use
  Company Number: UY-TEVA-696633ISR

PATIENT
  Age: 67 Year
  Sex: Female

DRUGS (7)
  1. T4 [Concomitant]
     Active Substance: LEVOTHYROXINE
     Dosage: 100 MILLIGRAM DAILY;
     Route: 048
  2. CONVERTAL 50 [Concomitant]
     Indication: HYPERTENSION
     Dosage: 50 MILLIGRAM DAILY;
     Route: 048
  3. VIOSTEROL 1000 [Concomitant]
     Dosage: 2000 IU (INTERNATIONAL UNIT) DAILY;
     Route: 048
  4. ATENOLAN [Concomitant]
     Indication: HYPERTENSION
     Dosage: 25 MILLIGRAM DAILY;
     Route: 048
  5. ANASTROZOL TEVA [Suspect]
     Active Substance: ANASTROZOLE
     Indication: BREAST CANCER
     Dosage: 1 MILLIGRAM DAILY;
     Route: 048
     Dates: start: 20160919
  6. AMLODIPINE [Concomitant]
     Active Substance: AMLODIPINE BESYLATE
  7. METFORMIN [Concomitant]
     Active Substance: METFORMIN HYDROCHLORIDE
     Dosage: 850 MILLIGRAM DAILY;
     Route: 048

REACTIONS (4)
  - Hypoaesthesia [Not Recovered/Not Resolved]
  - Dry eye [Not Recovered/Not Resolved]
  - Monoplegia [Not Recovered/Not Resolved]
  - Arthralgia [Not Recovered/Not Resolved]
